FAERS Safety Report 7733791-2 (Version None)
Quarter: 2011Q3

REPORT INFORMATION
  Report Type: 
  Country: None (occurrence: None)
  Receive Date: 20110901
  Receipt Date: 20110830
  Transmission Date: 20111222
  Serious: Yes (Disabling, Other)
  Sender: FDA-Public Use
  Company Number: 2011P1004659

PATIENT
  Age: 73 Year
  Sex: Female
  Weight: 63.5036 kg

DRUGS (1)
  1. DEXEDRINE [Suspect]
     Indication: NARCOLEPSY
     Dosage: 4 CAPSULES; TID; PO
     Route: 048
     Dates: start: 19710101

REACTIONS (10)
  - PRODUCT SUBSTITUTION ISSUE [None]
  - RHINORRHOEA [None]
  - OROPHARYNGEAL PAIN [None]
  - YAWNING [None]
  - PYREXIA [None]
  - BEDRIDDEN [None]
  - NIGHTMARE [None]
  - DRUG INEFFECTIVE [None]
  - NARCOLEPSY [None]
  - HEADACHE [None]
